FAERS Safety Report 7452968-7 (Version None)
Quarter: 2011Q2

REPORT INFORMATION
  Report Type: 
  Country: None (occurrence: None)
  Receive Date: 20110502
  Receipt Date: 20110421
  Transmission Date: 20111010
  Serious: Yes (Other)
  Sender: FDA-Public Use
  Company Number: US-ASTRAZENECA-2011SE22985

PATIENT

DRUGS (2)
  1. PROPOFOL [Suspect]
     Dosage: FOR AT LEAST 12 HOURS
  2. SIROLIMUS [Suspect]
     Dosage: FOR AT LEAST 12 HOURS

REACTIONS (2)
  - PROPOFOL INFUSION SYNDROME [None]
  - HYPERTRIGLYCERIDAEMIA [None]
